FAERS Safety Report 5315642-9 (Version None)
Quarter: 2007Q2

REPORT INFORMATION
  Report Type: 
  Country: None (occurrence: None)
  Receive Date: 20070430
  Receipt Date: 20070430
  Transmission Date: 20071010
  Serious: Yes (Hospitalization)
  Sender: FDA-Public Use
  Company Number: None

PATIENT
  Sex: Female
  Weight: 105 kg

DRUGS (3)
  1. TEMOZOLOMIDE [Suspect]
     Dosage: 860 MG
  2. TEMOZOLOMIDE [Suspect]
  3. ACYCLOVIR [Concomitant]

REACTIONS (9)
  - CONSTIPATION [None]
  - HERPES ZOSTER [None]
  - MUSCULAR WEAKNESS [None]
  - NAUSEA [None]
  - REFUSAL OF TREATMENT BY PATIENT [None]
  - RENAL FAILURE ACUTE [None]
  - SCAB [None]
  - VOMITING [None]
  - WHITE BLOOD CELLS URINE POSITIVE [None]
